FAERS Safety Report 7908048-7 (Version None)
Quarter: 2011Q4

REPORT INFORMATION
  Report Type: 
  Country: None (occurrence: None)
  Receive Date: 20111110
  Receipt Date: 20111107
  Transmission Date: 20120403
  Serious: Yes (Other)
  Sender: FDA-Public Use
  Company Number: US-BRISTOL-MYERS SQUIBB COMPANY-16217812

PATIENT
  Age: 57 Year
  Sex: Male
  Weight: 70 kg

DRUGS (2)
  1. TAXOL [Suspect]
     Indication: NON-SMALL CELL LUNG CANCER
     Dosage: LAST DOSE ON 27SEP11.45MG/M2 IV D1 8 15 22 19 36
     Route: 042
     Dates: start: 20110823
  2. CARBOPLATIN [Suspect]
     Indication: NON-SMALL CELL LUNG CANCER
     Dosage: LAST DOSE ON 27SEP11.AUC-2 IV D1 8 15 22 19 36
     Route: 042
     Dates: start: 20110823

REACTIONS (1)
  - HYPERURICAEMIA [None]
